FAERS Safety Report 6292358-6 (Version None)
Quarter: 2009Q3

REPORT INFORMATION
  Report Type: 
  Country: None (occurrence: None)
  Receive Date: 20090731
  Receipt Date: 20090720
  Transmission Date: 20100115
  Serious: Yes (Hospitalization)
  Sender: FDA-Public Use
  Company Number: CA-NOVOPROD-289585

PATIENT
  Sex: Male
  Weight: 120 kg

DRUGS (8)
  1. INSULIN DETEMIR 2.4 MOL/L [Suspect]
     Indication: TYPE 2 DIABETES MELLITUS
     Dates: start: 20090424
  2. CIPROFLOXACIN [Concomitant]
     Dosage: 1000 MG, UNK
     Dates: start: 20090708
  3. TYLENOL (CAPLET) [Concomitant]
     Dosage: UNK, PRN
  4. DIAMICRON MR [Concomitant]
     Dosage: 60 MG, UNK
     Dates: start: 20090424
  5. AVAPRO [Concomitant]
     Dosage: 150 MG, UNK
     Dates: start: 20010101
  6. METFORMIN [Concomitant]
  7. PANTOLOC                           /01263201/ [Concomitant]
     Dosage: 40 MG, QD
  8. CRESTOR [Concomitant]
     Dosage: 10 MG, UNK

REACTIONS (2)
  - DYSURIA [None]
  - MUSCULOSKELETAL PAIN [None]
